FAERS Safety Report 10183967 (Version 2)
Quarter: 2014Q2

REPORT INFORMATION
  Report Type: Spontaneous
  Country: US (occurrence: US)
  Receive Date: 20140520
  Receipt Date: 20140520
  Transmission Date: 20141212
  Serious: No
  Sender: FDA-Public Use
  Company Number: US-MYLANLABS-2014S1003472

PATIENT
  Age: 51 Year
  Sex: Female

DRUGS (6)
  1. BUDESONIDE CAPSULES [Suspect]
     Indication: MASTOCYTOSIS
     Route: 048
     Dates: start: 201401, end: 201401
  2. BUDESONIDE CAPSULES [Suspect]
     Indication: OFF LABEL USE
     Route: 048
     Dates: start: 201401, end: 201401
  3. RANITIDINE [Concomitant]
     Indication: MASTOCYTOSIS
  4. KETOTIFEN [Concomitant]
     Indication: MASTOCYTOSIS
  5. URSODIOL [Concomitant]
     Indication: MASTOCYTOSIS
  6. ZYRTEC [Concomitant]

REACTIONS (4)
  - Dizziness [Recovered/Resolved]
  - Nausea [Recovered/Resolved]
  - Urticaria [Recovered/Resolved]
  - Reaction to drug excipients [Recovered/Resolved]
